FAERS Safety Report 7162747-6 (Version None)
Quarter: 2010Q4

REPORT INFORMATION
  Report Type: 
  Country: None (occurrence: None)
  Receive Date: 20101215
  Receipt Date: 20091215
  Transmission Date: 20110411
  Serious: Yes (Other)
  Sender: FDA-Public Use
  Company Number: US-PFIZER INC-2009310921

PATIENT
  Sex: Female

DRUGS (2)
  1. EXEMESTANE [Suspect]
     Dosage: UNK
     Dates: start: 20091105
  2. TYKERB [Suspect]
     Dosage: 1250 MG / UNK
     Dates: start: 20091105

REACTIONS (6)
  - DIARRHOEA [None]
  - JOINT STIFFNESS [None]
  - PALMAR-PLANTAR ERYTHRODYSAESTHESIA SYNDROME [None]
  - PARAESTHESIA [None]
  - PRURITUS [None]
  - SKIN EXFOLIATION [None]
